FAERS Safety Report 5149637-5 (Version None)
Quarter: 2006Q4

REPORT INFORMATION
  Report Type: 
  Country: None (occurrence: None)
  Receive Date: 20061113
  Receipt Date: 20060629
  Transmission Date: 20070319
  Serious: Yes (Other)
  Sender: FDA-Public Use
  Company Number: S2006US11543

PATIENT
  Age: 65 Year
  Sex: Male
  Weight: 109.5 kg

DRUGS (6)
  1. COREG [Suspect]
     Indication: CARDIOMYOPATHY
     Dosage: 12.5MG TWICE PER DAY
     Route: 048
     Dates: start: 20060127
  2. BIDIL [Suspect]
     Indication: DRUG USE FOR UNKNOWN INDICATION
     Route: 048
     Dates: start: 20060421, end: 20060603
  3. AMIODARONE HCL [Concomitant]
     Dosage: 200MG PER DAY
     Route: 048
     Dates: start: 20060127
  4. WARFARIN SODIUM [Concomitant]
     Dosage: 2.5MG PER DAY
     Route: 048
     Dates: start: 20060127
  5. LASIX [Concomitant]
     Indication: DRUG USE FOR UNKNOWN INDICATION
     Dosage: 40MG PER DAY
     Route: 048
     Dates: start: 20060127
  6. DIOVAN [Concomitant]
     Indication: DRUG USE FOR UNKNOWN INDICATION
     Dosage: 80MG PER DAY
     Route: 048
     Dates: start: 20060127

REACTIONS (2)
  - DIZZINESS [None]
  - SYNCOPE [None]
